FAERS Safety Report 21759599 (Version 2)
Quarter: 2023Q1

REPORT INFORMATION
  Report Type: Spontaneous
  Country: US (occurrence: US)
  Receive Date: 20221221
  Receipt Date: 20230301
  Transmission Date: 20230417
  Serious: Yes (Hospitalization, Other)
  Sender: FDA-Public Use
  Company Number: ES-PADAGIS-2022PAD01216

PATIENT

DRUGS (1)
  1. IMIQUIMOD [Suspect]
     Active Substance: IMIQUIMOD
     Indication: Actinic keratosis
     Dosage: UNK 3 TIMES A WEEK FOR SEVERAL MONTHS
     Route: 065

REACTIONS (1)
  - Systemic lupus erythematosus [Unknown]
